FAERS Safety Report 6124707-3 (Version None)
Quarter: 2009Q1

REPORT INFORMATION
  Report Type: 
  Country: None (occurrence: None)
  Receive Date: 20090319
  Receipt Date: 20090310
  Transmission Date: 20090719
  Serious: Yes (Hospitalization)
  Sender: FDA-Public Use
  Company Number: US-ELI_LILLY_AND_COMPANY-US200902004500

PATIENT
  Age: 57 Year
  Sex: Male
  Weight: 112.47 kg

DRUGS (5)
  1. BYETTA [Suspect]
     Indication: TYPE 2 DIABETES MELLITUS
     Dosage: 5 UG, 2/D
     Route: 058
     Dates: start: 20080630, end: 20081020
  2. METFORMIN HCL [Concomitant]
     Dosage: 500 MG, 2/D
  3. LIPITOR [Concomitant]
     Dosage: 40 MG, DAILY (1/D)
  4. ASPIRIN [Concomitant]
     Dosage: 81 MG, UNK
  5. MULTI-VITAMIN [Concomitant]

REACTIONS (2)
  - HEPATIC STEATOSIS [None]
  - PANCREATITIS [None]
